FAERS Safety Report 4340572-9 (Version None)
Quarter: 2004Q2

REPORT INFORMATION
  Report Type: 
  Country: None (occurrence: None)
  Receive Date: 20040416
  Receipt Date: 20040416
  Transmission Date: 20050107
  Serious: Yes (Disabling)
  Sender: FDA-Public Use
  Company Number: None

PATIENT
  Age: 45 Year
  Sex: Male
  Weight: 65.7716 kg

DRUGS (1)
  1. SEROQUEL [Suspect]
     Dates: start: 20030101, end: 20030401

REACTIONS (2)
  - ABASIA [None]
  - MYALGIA [None]
